FAERS Safety Report 26100172 (Version 1)
Quarter: 2025Q4

REPORT INFORMATION
  Report Type: Spontaneous
  Country: EU (occurrence: EU)
  Receive Date: 20251128
  Receipt Date: 20251128
  Transmission Date: 20260117
  Serious: Yes (Hospitalization, Other)
  Sender: JOHNSON AND JOHNSON
  Company Number: EU-PFIZER INC-202500225921

PATIENT
  Age: 27 Year
  Sex: Male

DRUGS (1)
  1. INFLIXIMAB [Suspect]
     Active Substance: INFLIXIMAB
     Indication: Crohn^s disease
     Dosage: UNK
     Route: 041

REACTIONS (3)
  - Drug-induced liver injury [Recovered/Resolved]
  - Liver disorder [Recovered/Resolved]
  - Abdominal pain [Recovered/Resolved]
